FAERS Safety Report 11413768 (Version 2)
Quarter: 2016Q2

REPORT INFORMATION
  Report Type: Spontaneous
  Country: IN (occurrence: IN)
  Receive Date: 20150824
  Receipt Date: 20160427
  Transmission Date: 20160815
  Serious: Yes (Hospitalization)
  Sender: FDA-Public Use
  Company Number: IN-009507513-1508IND008868

PATIENT
  Age: 66 Year
  Sex: Female
  Weight: 67 kg

DRUGS (1)
  1. JANUVIA [Suspect]
     Active Substance: SITAGLIPTIN PHOSPHATE
     Indication: DIABETES MELLITUS
     Dosage: 100 MG DAILY
     Route: 048

REACTIONS (5)
  - Dehydration [Not Recovered/Not Resolved]
  - Diarrhoea [Recovered/Resolved]
  - Food poisoning [Not Recovered/Not Resolved]
  - Dehydration [Recovered/Resolved]
  - Pyrexia [Recovered/Resolved]

NARRATIVE: CASE EVENT DATE: 20150817
